FAERS Safety Report 16410932 (Version 2)
Quarter: 2019Q3

REPORT INFORMATION
  Report Type: Spontaneous
  Country: FR (occurrence: FR)
  Receive Date: 20190610
  Receipt Date: 20190916
  Transmission Date: 20191004
  Serious: Yes (Death, Other)
  Sender: FDA-Public Use
  Company Number: FR-MYLANLABS-2019M1052656

PATIENT
  Age: 62 Year
  Sex: Male

DRUGS (25)
  1. CASPOFUNGIN [Suspect]
     Active Substance: CASPOFUNGIN
     Indication: INFECTION PROPHYLAXIS
     Dosage: UNK
  2. TAZOCILLINE [Suspect]
     Active Substance: PIPERACILLIN SODIUM\TAZOBACTAM SODIUM
     Indication: PNEUMOCOCCAL INFECTION
     Dosage: 12 GRAM, QD(4 G, TID)
     Route: 042
     Dates: start: 201502, end: 2015
  3. PROGRAF [Suspect]
     Active Substance: TACROLIMUS\TACROLIMUS ANHYDROUS
     Indication: IMMUNOSUPPRESSION
     Dosage: 4 MILLIGRAM, QD(2 MG, 2X/DAY (2MG TWICE DAILY)
     Route: 048
  4. FLUMAZENIL. [Concomitant]
     Active Substance: FLUMAZENIL
     Indication: LOSS OF CONSCIOUSNESS
     Dosage: UNK UNK, QD
     Route: 042
     Dates: start: 201502, end: 201502
  5. METHYLPREDNISOLONE HEMISUCCINATE [Suspect]
     Active Substance: METHYLPREDNISOLONE HEMISUCCINATE
     Indication: PROPHYLAXIS AGAINST TRANSPLANT REJECTION
     Dosage: UNK
  6. BASILIXIMAB [Suspect]
     Active Substance: BASILIXIMAB
     Indication: LIVER TRANSPLANT
     Dosage: UNK
  7. FLUCONAZOLE. [Suspect]
     Active Substance: FLUCONAZOLE
     Indication: PRODUCT USED FOR UNKNOWN INDICATION
     Dosage: UNK
  8. TAZOCILLINE [Suspect]
     Active Substance: PIPERACILLIN SODIUM\TAZOBACTAM SODIUM
     Indication: ANTIFUNGAL PROPHYLAXIS
     Dosage: UNK
     Dates: start: 201503, end: 201503
  9. SULFAMETHOXAZOLE AND TRIMETHOPRIM [Suspect]
     Active Substance: SULFAMETHOXAZOLE\TRIMETHOPRIM
     Indication: ANTIFUNGAL PROPHYLAXIS
     Dosage: 800 MILLIGRAM, QOD
     Route: 048
  10. TACROLIMUS. [Suspect]
     Active Substance: TACROLIMUS
     Indication: PROPHYLAXIS AGAINST TRANSPLANT REJECTION
     Dosage: UNK
  11. SULFAMETHOXAZOLE AND TRIMETHOPRIM [Suspect]
     Active Substance: SULFAMETHOXAZOLE\TRIMETHOPRIM
     Indication: INFECTION PROPHYLAXIS
     Dosage: 800 MILLIGRAM, CYCLE(800 MG, CYCLIC Q48H (ONCE EVERY TWO DAY)
     Route: 048
     Dates: start: 20150303
  12. TACROLIMUS. [Suspect]
     Active Substance: TACROLIMUS
     Indication: LIVER TRANSPLANT
     Dosage: 4 MILLIGRAM, QD(2 MG, 2X/DAY)
     Route: 048
     Dates: start: 2009
  13. SOLU-MEDROL [Suspect]
     Active Substance: METHYLPREDNISOLONE SODIUM SUCCINATE
     Indication: IMMUNOSUPPRESSION
     Dosage: 40 MILLIGRAM, QD
  14. CELLCEPT [Suspect]
     Active Substance: MYCOPHENOLATE MOFETIL\MYCOPHENOLATE MOFETIL HYDROCHLORIDE
     Indication: IMMUNOSUPPRESSION
     Dosage: 2 GRAM, QD(1 G, 2X/DAY (1G TWICE DAILY))
  15. NOREPINEPHRINE. [Concomitant]
     Active Substance: NOREPINEPHRINE
     Indication: ANURIA
     Dosage: UNK
     Dates: start: 2015, end: 2015
  16. CASPOFUNGIN [Suspect]
     Active Substance: CASPOFUNGIN
     Indication: ANTIFUNGAL PROPHYLAXIS
     Dosage: 50 MILLIGRAM, QD
     Route: 042
     Dates: start: 201503, end: 201503
  17. SULFAMETHOXAZOLE AND TRIMETHOPRIM [Suspect]
     Active Substance: SULFAMETHOXAZOLE\TRIMETHOPRIM
     Indication: ANTI-INFECTIVE THERAPY
     Dosage: 800 MILLIGRAM, Q2D
     Route: 048
  18. TAZOCILLINE [Suspect]
     Active Substance: PIPERACILLIN SODIUM\TAZOBACTAM SODIUM
     Indication: INFECTION PROPHYLAXIS
     Dosage: UNK
  19. BASILIXIMAB [Suspect]
     Active Substance: BASILIXIMAB
     Indication: PROPHYLAXIS AGAINST TRANSPLANT REJECTION
     Dosage: UNK
  20. NOREPINEPHRINE. [Concomitant]
     Active Substance: NOREPINEPHRINE
     Dosage: UNK
  21. CASPOFUNGIN [Suspect]
     Active Substance: CASPOFUNGIN
     Indication: FUNGAEMIA
     Dosage: 50 MILLIGRAM, QD
     Route: 042
  22. BASILIXIMAB [Suspect]
     Active Substance: BASILIXIMAB
     Dosage: UNK
     Dates: start: 20150303
  23. METHYLPREDNISOLONE HEMISUCCINATE [Suspect]
     Active Substance: METHYLPREDNISOLONE HEMISUCCINATE
     Indication: LIVER TRANSPLANT
     Dosage: UNK
  24. TACROLIMUS. [Suspect]
     Active Substance: TACROLIMUS
     Indication: IMMUNOSUPPRESSANT DRUG THERAPY
     Dosage: UNK
  25. FLUMAZENIL. [Concomitant]
     Active Substance: FLUMAZENIL
     Indication: SOMNOLENCE
     Dosage: UNK

REACTIONS (4)
  - Drug ineffective [Fatal]
  - Septic shock [Fatal]
  - Hyperthermia [Fatal]
  - Multiple organ dysfunction syndrome [Fatal]

NARRATIVE: CASE EVENT DATE: 20150306
